FAERS Safety Report 6937537-7 (Version None)
Quarter: 2010Q3

REPORT INFORMATION
  Report Type: 
  Country: None (occurrence: None)
  Receive Date: 20100823
  Receipt Date: 20100823
  Transmission Date: 20110219
  Serious: Yes (Other)
  Sender: FDA-Public Use
  Company Number: None

PATIENT
  Age: 41 Year
  Sex: Female
  Weight: 56.6996 kg

DRUGS (1)
  1. OCELLA 3 MG/0.030MG TEVA PHARMACEUTICALS [Suspect]
     Indication: CONTRACEPTION
     Dosage: 1 Q DAY PO
     Route: 048
     Dates: start: 20080813, end: 20090930

REACTIONS (10)
  - ACNE [None]
  - ALOPECIA [None]
  - ANAEMIA [None]
  - DYSMENORRHOEA [None]
  - FATIGUE [None]
  - IRRITABILITY [None]
  - MENORRHAGIA [None]
  - PREMATURE MENOPAUSE [None]
  - PRODUCT SUBSTITUTION ISSUE [None]
  - WEIGHT INCREASED [None]
